FAERS Safety Report 8836959 (Version 1)
Quarter: 2012Q4

REPORT INFORMATION
  Report Type: Spontaneous
  Country: US (occurrence: None)
  Receive Date: 20121011
  Receipt Date: 20121011
  Transmission Date: 20130627
  Serious: No
  Sender: FDA-Public Use
  Company Number: None

PATIENT
  Weight: 102.06 kg

DRUGS (2)
  1. METHYLPREDNISOLON [Suspect]
     Dosage: Day 1 = 6 Tabs Day 2 = 5 Tabs Day 3 = 4 Tabs Day 4 = 3 Tabs Day 5 = 2 Tabs Day 6 = 1 tab
     Dates: start: 20120914, end: 20120919
  2. METHYLPREDNISOLON [Suspect]
     Dosage: Day 1 = 6 Tabs Day 2 = 5 Tabs Day 3 = 4 Tabs Day 4 = 3 Tabs Day 5 = 2 Tabs Day 6 = 1 tab
     Dates: start: 20120914, end: 20120919

REACTIONS (3)
  - Hypersensitivity [None]
  - Urticaria [None]
  - Drug ineffective [None]
